FAERS Safety Report 9293238 (Version 1)
Quarter: 2013Q2

REPORT INFORMATION
  Report Type: Spontaneous
  Country: FR (occurrence: FR)
  Receive Date: 20130516
  Receipt Date: 20130516
  Transmission Date: 20140414
  Serious: Yes (Other)
  Sender: FDA-Public Use
  Company Number: FR-BAXTER-2013BAX009508

PATIENT
  Sex: 0

DRUGS (1)
  1. KIOVIG, 100 MG/ML, SOLUTION POUR PERFUSION [Suspect]
     Indication: APLASIA PURE RED CELL
     Route: 042

REACTIONS (1)
  - Renal failure acute [Recovered/Resolved]
